FAERS Safety Report 25600328 (Version 1)
Quarter: 2025Q3

REPORT INFORMATION
  Report Type: Report from Study
  Country: US (occurrence: US)
  Receive Date: 20250724
  Receipt Date: 20250724
  Transmission Date: 20251021
  Serious: Yes (Disabling)
  Sender: GILEAD
  Company Number: US-GILEAD-2025-0721486

PATIENT
  Sex: Male

DRUGS (3)
  1. AZTREONAM LYSINE [Suspect]
     Active Substance: AZTREONAM LYSINE
     Indication: Cystic fibrosis lung
     Dosage: 75MG NEBULIZER 3 TIMES A DAY FOR 28 DAYS ON AND 28 DAYS OFF
     Route: 055
     Dates: start: 20220210
  2. ALYFTREK [Suspect]
     Active Substance: DEUTIVACAFTOR\TEZACAFTOR\VANZACAFTOR
     Indication: Cystic fibrosis lung
     Dosage: 2 TABLETS BY MOUTH 1 TIME A DAY
     Route: 048
     Dates: start: 20250618
  3. TRIKAFTA [Suspect]
     Active Substance: ELEXACAFTOR\IVACAFTOR\TEZACAFTOR
     Indication: Cystic fibrosis lung
     Dosage: 2 ORANGE TABLETS BY MOUTH IN THE MORNING AND 1 LIGHT BLUE TABLET IN THE EVENING
     Route: 048
     Dates: start: 20241119

REACTIONS (1)
  - Therapy non-responder [Unknown]
